FAERS Safety Report 6203491-9 (Version None)
Quarter: 2009Q2

REPORT INFORMATION
  Report Type: 
  Country: None (occurrence: None)
  Receive Date: 20090527
  Receipt Date: 20090521
  Transmission Date: 20091009
  Serious: Yes (Death, Hospitalization, Other)
  Sender: FDA-Public Use
  Company Number: ES-WYE-G03226709

PATIENT
  Age: 59 Year
  Sex: Male

DRUGS (1)
  1. RAPAMUNE [Suspect]
     Indication: PROPHYLAXIS AGAINST TRANSPLANT REJECTION
     Dosage: UNKNOWN
     Dates: start: 20070201

REACTIONS (5)
  - COLON CANCER [None]
  - CONCOMITANT DISEASE PROGRESSION [None]
  - HEPATIC NEOPLASM MALIGNANT [None]
  - PNEUMONITIS [None]
  - PYREXIA [None]
